FAERS Safety Report 9187249 (Version 4)
Quarter: 2013Q3

REPORT INFORMATION
  Report Type: Report from Study
  Country: US (occurrence: US)
  Receive Date: 20130322
  Receipt Date: 20130703
  Transmission Date: 20140515
  Serious: Yes (Hospitalization, Other)
  Sender: FDA-Public Use
  Company Number: US-ACTELION-A-US2013-80671

PATIENT
  Age: 84 Year
  Sex: Female

DRUGS (2)
  1. TRACLEER [Suspect]
     Indication: PULMONARY ARTERIAL HYPERTENSION
     Dosage: UNK
     Route: 048
  2. LASIX [Concomitant]

REACTIONS (6)
  - Femoral neck fracture [Recovering/Resolving]
  - Hip arthroplasty [Recovering/Resolving]
  - Kidney infection [Recovering/Resolving]
  - Skin cancer [Unknown]
  - Radiotherapy [Unknown]
  - Asthenia [Unknown]
